FAERS Safety Report 18392286 (Version 2)
Quarter: 2020Q4

REPORT INFORMATION
  Report Type: Spontaneous
  Country: CH (occurrence: CH)
  Receive Date: 20201016
  Receipt Date: 20201030
  Transmission Date: 20210114
  Serious: Yes (Other)
  Sender: FDA-Public Use
  Company Number: CH-JNJFOC-20201009530

PATIENT

DRUGS (18)
  1. TACROLIMUS. [Suspect]
     Active Substance: TACROLIMUS
     Indication: RENAL FAILURE
     Route: 048
  2. CLOPIDOGREL [Concomitant]
     Active Substance: CLOPIDOGREL BISULFATE
  3. ROSUVASTATIN CALCIUM. [Concomitant]
     Active Substance: ROSUVASTATIN CALCIUM
  4. ASPIRINE [Concomitant]
     Active Substance: ASPIRIN
  5. PREDNISONE. [Concomitant]
     Active Substance: PREDNISONE
  6. INSULATARD                         /00646002/ [Concomitant]
     Active Substance: INSULIN HUMAN
  7. ARANESP [Concomitant]
     Active Substance: DARBEPOETIN ALFA
  8. REOMAX                             /00020501/ [Concomitant]
     Active Substance: ETHACRYNIC ACID
  9. ESOMEPRAZOLE. [Concomitant]
     Active Substance: ESOMEPRAZOLE MAGNESIUM
  10. PHYSIOTENS [Concomitant]
     Active Substance: MOXONIDINE
     Dosage: 0.2 1X/D
  11. CALCIMAGON-D3 [Concomitant]
     Active Substance: CALCIUM\CHOLECALCIFEROL
     Dosage: FORTE 2X/D
  12. STELARA [Suspect]
     Active Substance: USTEKINUMAB
     Indication: PSORIASIS
     Dosage: IN FEB-2020 STELARA THERAPY STARTED, LAST (3RD) INJECTION : 29-JUN-2020.
     Route: 058
     Dates: start: 20200225
  13. ALDACTONE [Concomitant]
     Active Substance: SPIRONOLACTONE
  14. DILATREND [Concomitant]
     Active Substance: CARVEDILOL
  15. DUSPATALIN                         /00139402/ [Concomitant]
     Active Substance: MEBEVERINE HYDROCHLORIDE
  16. TRAJENTA [Concomitant]
     Active Substance: LINAGLIPTIN
  17. ROCALTROL [Concomitant]
     Active Substance: CALCITRIOL
  18. ZANIDIP [Concomitant]
     Active Substance: LERCANIDIPINE HYDROCHLORIDE

REACTIONS (4)
  - Immunosuppression [Unknown]
  - Psoriasis [Not Recovered/Not Resolved]
  - Blood creatinine increased [Unknown]
  - Polyomavirus viraemia [Not Recovered/Not Resolved]

NARRATIVE: CASE EVENT DATE: 2018
